FAERS Safety Report 7496993-9 (Version None)
Quarter: 2011Q2

REPORT INFORMATION
  Report Type: 
  Country: None (occurrence: None)
  Receive Date: 20110523
  Receipt Date: 20110512
  Transmission Date: 20111010
  Serious: Yes (Hospitalization)
  Sender: FDA-Public Use
  Company Number: GT-US-EMD SERONO, INC.-7059223

PATIENT
  Sex: Male

DRUGS (1)
  1. SAIZEN [Suspect]

REACTIONS (1)
  - DIABETES MELLITUS [None]
